FAERS Safety Report 5331429-5 (Version None)
Quarter: 2007Q2

REPORT INFORMATION
  Report Type: 
  Country: None (occurrence: None)
  Receive Date: 20070522
  Receipt Date: 20070518
  Transmission Date: 20071010
  Serious: Yes (Other)
  Sender: FDA-Public Use
  Company Number: US-ASTRAZENECA-2007UW12264

PATIENT
  Age: 35 Year
  Sex: Female
  Weight: 61.8 kg

DRUGS (4)
  1. RHINOCORT [Suspect]
     Indication: NASAL CONGESTION
     Route: 045
     Dates: start: 20070312, end: 20070318
  2. NASALCROM [Suspect]
     Indication: NASAL CONGESTION
     Dosage: 1-2 SPRAY AS NEEDED
     Route: 045
     Dates: start: 20070312, end: 20070315
  3. AMOXICILLIN [Suspect]
     Indication: SINUSITIS
     Route: 048
     Dates: start: 20070310
  4. PRENATAL VITAMINS [Concomitant]
     Indication: PREGNANCY
     Route: 048

REACTIONS (3)
  - DRUG EXPOSURE DURING PREGNANCY [None]
  - PELVIC PROLAPSE [None]
  - URINARY RETENTION [None]
